FAERS Safety Report 17414189 (Version 1)
Quarter: 2020Q1

REPORT INFORMATION
  Report Type: Spontaneous
  Country: US (occurrence: US)
  Receive Date: 20200213
  Receipt Date: 20200213
  Transmission Date: 20200409
  Serious: No
  Sender: FDA-Public Use
  Company Number: US-GLAXOSMITHKLINE-US2020AMR019952

PATIENT

DRUGS (4)
  1. BREO ELLIPTA [Suspect]
     Active Substance: FLUTICASONE FUROATE\VILANTEROL TRIFENATATE
     Dosage: 200/25 MCG
     Route: 065
     Dates: end: 20200131
  2. FLONASE [Suspect]
     Active Substance: FLUTICASONE PROPIONATE
     Indication: PRODUCT USED FOR UNKNOWN INDICATION
     Dosage: UNK
     Route: 065
  3. ASTELIN [Suspect]
     Active Substance: AZELASTINE HYDROCHLORIDE
     Indication: PRODUCT USED FOR UNKNOWN INDICATION
     Dosage: UNK
     Route: 065
  4. BREO ELLIPTA [Suspect]
     Active Substance: FLUTICASONE FUROATE\VILANTEROL TRIFENATATE
     Indication: ASTHMA
     Dosage: 100/25 MCG
     Route: 065
     Dates: start: 2019

REACTIONS (20)
  - Lung disorder [Unknown]
  - Muscle spasms [Recovering/Resolving]
  - Dyspnoea [Recovering/Resolving]
  - Aphonia [Unknown]
  - Product dose omission [Unknown]
  - Back pain [Unknown]
  - Upper respiratory tract infection [Unknown]
  - Chest discomfort [Recovering/Resolving]
  - Cough [Unknown]
  - Sinus disorder [Unknown]
  - Throat irritation [Unknown]
  - Pulmonary function test abnormal [Unknown]
  - Headache [Unknown]
  - Bronchospasm paradoxical [Unknown]
  - Dysphonia [Unknown]
  - Urinary tract infection [Recovered/Resolved]
  - Ill-defined disorder [Unknown]
  - Hypersensitivity [Unknown]
  - Sinusitis [Unknown]
  - Condition aggravated [Unknown]

NARRATIVE: CASE EVENT DATE: 201907
